FAERS Safety Report 9189449 (Version 1)
Quarter: 2013Q1

REPORT INFORMATION
  Report Type: Spontaneous
  Country: MX (occurrence: MX)
  Receive Date: 20130326
  Receipt Date: 20130326
  Transmission Date: 20140127
  Serious: Yes (Other)
  Sender: FDA-Public Use
  Company Number: PHHY2013MX028581

PATIENT
  Age: 65 Year
  Sex: Female

DRUGS (1)
  1. EXFORGE HCT [Suspect]
     Dosage: 1 DF (VALS 320 MG, AMLO 10 MG, HYDR 25 MG), DAILY
     Route: 048
     Dates: start: 20121226

REACTIONS (1)
  - Blindness [Unknown]
